FAERS Safety Report 10519955 (Version 1)
Quarter: 2014Q4

REPORT INFORMATION
  Report Type: Spontaneous
  Country: DE (occurrence: DE)
  Receive Date: 20141015
  Receipt Date: 20141015
  Transmission Date: 20150528
  Serious: Yes (Death, Other)
  Sender: FDA-Public Use
  Company Number: DE-ROCHE-1474656

PATIENT
  Age: 68 Year
  Sex: Female

DRUGS (4)
  1. TAXOL [Concomitant]
     Active Substance: PACLITAXEL
     Indication: NON-SMALL CELL LUNG CANCER
     Dosage: 4 CYCLES
     Route: 042
     Dates: start: 201203, end: 201205
  2. AVASTIN [Suspect]
     Active Substance: BEVACIZUMAB
     Indication: NON-SMALL CELL LUNG CANCER
     Dosage: 4 CYCLES
     Route: 042
     Dates: start: 201203, end: 201205
  3. AVASTIN [Suspect]
     Active Substance: BEVACIZUMAB
     Dosage: 23 CYCLES MAINTENANCE THERAPY
     Route: 042
     Dates: start: 201206, end: 201310
  4. CARBOPLATIN. [Concomitant]
     Active Substance: CARBOPLATIN
     Indication: NON-SMALL CELL LUNG CANCER
     Dosage: 4 CYCLES
     Route: 042
     Dates: start: 201203, end: 201205

REACTIONS (6)
  - Neutropenia [Recovered/Resolved]
  - Asthenia [Recovered/Resolved]
  - Haemoptysis [Unknown]
  - Malignant neoplasm progression [Fatal]
  - Decreased appetite [Recovered/Resolved]
  - Stomatitis [Recovered/Resolved]

NARRATIVE: CASE EVENT DATE: 20131025
